FAERS Safety Report 6728660-0 (Version None)
Quarter: 2010Q2

REPORT INFORMATION
  Report Type: 
  Country: None (occurrence: None)
  Receive Date: 20100517
  Receipt Date: 20100512
  Transmission Date: 20101027
  Serious: Yes (Other)
  Sender: FDA-Public Use
  Company Number: 12336111

PATIENT
  Age: 63 Year
  Sex: Female

DRUGS (2)
  1. PACLITAXEL [Suspect]
     Indication: MALIGNANT PERITONEAL NEOPLASM
     Dosage: THERAPY INTERRUPTED RESTARTED IN NOVEMBER 1999.
     Route: 042
     Dates: start: 19990601, end: 19991101
  2. PARAPLATIN [Concomitant]
     Indication: MALIGNANT PERITONEAL NEOPLASM
     Route: 042
     Dates: start: 19990601, end: 19990801

REACTIONS (1)
  - SCLERODERMA [None]
